FAERS Safety Report 7995725-5 (Version None)
Quarter: 2011Q4

REPORT INFORMATION
  Report Type: 
  Country: None (occurrence: None)
  Receive Date: 20111220
  Receipt Date: 20111214
  Transmission Date: 20120403
  Serious: Yes (Death, Hospitalization, Other)
  Sender: FDA-Public Use
  Company Number: DE-ROCHE-796562

PATIENT
  Age: 71 Year
  Sex: Male
  Weight: 69 kg

DRUGS (4)
  1. CYCLOPHOSPHAMIDE [Suspect]
     Indication: CHRONIC LYMPHOCYTIC LEUKAEMIA
     Route: 042
     Dates: start: 20100628, end: 20101021
  2. MABTHERA [Suspect]
     Route: 042
  3. FLUDARABINE PHOSPHATE [Suspect]
     Indication: CHRONIC LYMPHOCYTIC LEUKAEMIA
     Route: 042
     Dates: start: 20100628, end: 20101021
  4. MABTHERA [Suspect]
     Indication: CHRONIC LYMPHOCYTIC LEUKAEMIA
     Dosage: 4 CYCLES GIVEN
     Route: 042
     Dates: start: 20100624, end: 20101018

REACTIONS (3)
  - GENERAL PHYSICAL HEALTH DETERIORATION [None]
  - PNEUMONIA [None]
  - SEPSIS [None]
